FAERS Safety Report 7331046-1 (Version None)
Quarter: 2011Q1

REPORT INFORMATION
  Report Type: 
  Country: None (occurrence: None)
  Receive Date: 20110304
  Receipt Date: 20110224
  Transmission Date: 20110831
  Serious: Yes (Hospitalization)
  Sender: FDA-Public Use
  Company Number: US-ASTELLAS-2011US000796

PATIENT
  Sex: Male
  Weight: 135 kg

DRUGS (1)
  1. AMEVIVE [Suspect]
     Indication: PSORIASIS
     Dosage: 15 MG, WEEKLY
     Route: 030
     Dates: start: 20080916

REACTIONS (3)
  - INJURY [None]
  - BLOOD POTASSIUM INCREASED [None]
  - ACCIDENT [None]
